FAERS Safety Report 5663052-7 (Version None)
Quarter: 2008Q1

REPORT INFORMATION
  Report Type: 
  Country: None (occurrence: None)
  Receive Date: 20080313
  Receipt Date: 20080304
  Transmission Date: 20080703
  Serious: Yes (Hospitalization)
  Sender: FDA-Public Use
  Company Number: US-JNJFOC-20070903780

PATIENT
  Sex: Female
  Weight: 92.08 kg

DRUGS (4)
  1. ORTHO EVRA [Suspect]
     Indication: MENOMETRORRHAGIA
     Route: 062
  2. ORTHO EVRA [Suspect]
     Indication: DYSMENORRHOEA
     Route: 062
  3. ORTHO EVRA [Suspect]
     Indication: ENDOMETRIOSIS
     Route: 062
  4. HYDROCORTISONE [Concomitant]

REACTIONS (7)
  - DYSPNOEA [None]
  - FATIGUE [None]
  - MUSCULAR WEAKNESS [None]
  - NAUSEA [None]
  - OFF LABEL USE [None]
  - THROMBOSIS [None]
  - TRANSIENT ISCHAEMIC ATTACK [None]
